FAERS Safety Report 16427264 (Version 1)
Quarter: 2019Q3

REPORT INFORMATION
  Report Type: Spontaneous
  Country: US (occurrence: US)
  Receive Date: 20190612
  Receipt Date: 20190612
  Transmission Date: 20191004
  Serious: No
  Sender: FDA-Public Use
  Company Number: None

PATIENT
  Age: 41 Year
  Sex: Male
  Weight: 84.6 kg

DRUGS (1)
  1. FLONASE ALLERGY RELIEF [Suspect]
     Active Substance: FLUTICASONE PROPIONATE
     Indication: HYPERSENSITIVITY
     Dosage: ?          QUANTITY:60 SPRAY(S);OTHER FREQUENCY:24 HOUR;OTHER ROUTE:SPRAYED IT IN NOSE?
     Route: 055

REACTIONS (3)
  - Dizziness [None]
  - Gait disturbance [None]
  - Vomiting [None]
